FAERS Safety Report 5709922-2 (Version None)
Quarter: 2008Q2

REPORT INFORMATION
  Report Type: 
  Country: None (occurrence: None)
  Receive Date: 20080418
  Receipt Date: 20070502
  Transmission Date: 20081010
  Serious: No
  Sender: FDA-Public Use
  Company Number: US-ASTRAZENECA-2007UW09355

PATIENT
  Age: 60 Year
  Sex: Female

DRUGS (1)
  1. TOPROL-XL [Suspect]
     Route: 048

REACTIONS (4)
  - BALANCE DISORDER [None]
  - CHEST DISCOMFORT [None]
  - DIZZINESS [None]
  - OEDEMA PERIPHERAL [None]
